FAERS Safety Report 5493866-8 (Version None)
Quarter: 2007Q4

REPORT INFORMATION
  Report Type: 
  Country: None (occurrence: None)
  Receive Date: 20071019
  Receipt Date: 20071008
  Transmission Date: 20080405
  Serious: Yes (Disabling)
  Sender: FDA-Public Use
  Company Number: OSCN-PR-0710L-0397

PATIENT
  Age: 37 Year
  Sex: Male

DRUGS (2)
  1. OMNISCAN [Suspect]
     Indication: RENAL FAILURE CHRONIC
     Dosage: 1 ML/5 KG, SINGLE DOSE, I.V.
     Route: 042
     Dates: start: 20040101, end: 20040101
  2. VITAMIN K ANTAGONIST [Concomitant]

REACTIONS (5)
  - ABASIA [None]
  - JOINT RANGE OF MOTION DECREASED [None]
  - NEPHROGENIC SYSTEMIC FIBROSIS [None]
  - OEDEMA [None]
  - PAIN IN EXTREMITY [None]
